FAERS Safety Report 17564271 (Version 1)
Quarter: 2020Q1

REPORT INFORMATION
  Report Type: Spontaneous
  Country: DE (occurrence: DE)
  Receive Date: 20200320
  Receipt Date: 20200320
  Transmission Date: 20200409
  Serious: Yes (Other)
  Sender: FDA-Public Use
  Company Number: DE-ABBVIE-19K-062-3186360-00

PATIENT
  Age: 12 Month
  Sex: Female
  Weight: 6.5 kg

DRUGS (5)
  1. TOPIRAMAT [Concomitant]
     Active Substance: TOPIRAMATE
     Indication: EPILEPSY
     Route: 048
  2. INFATRINI [Concomitant]
     Indication: FAILURE TO THRIVE
     Dosage: FOR NUTRITION
     Route: 048
  3. SYNAGIS [Suspect]
     Active Substance: PALIVIZUMAB
     Indication: CARDIAC DISORDER
     Route: 030
     Dates: start: 20181026, end: 20190319
  4. OMEPRAZOL [Concomitant]
     Active Substance: OMEPRAZOLE
     Indication: PRODUCT USED FOR UNKNOWN INDICATION
     Route: 048
  5. LUMINALETTEN [Concomitant]
     Active Substance: PHENOBARBITAL
     Indication: PRODUCT USED FOR UNKNOWN INDICATION

REACTIONS (2)
  - Hepatic neoplasm [Unknown]
  - Hepatoblastoma [Recovered/Resolved]

NARRATIVE: CASE EVENT DATE: 201904
